FAERS Safety Report 8925995 (Version 1)
Quarter: 2012Q4

REPORT INFORMATION
  Report Type: 
  Country: NZ (occurrence: NZ)
  Receive Date: 20121126
  Receipt Date: 20121126
  Transmission Date: 20130627
  Serious: Yes (Hospitalization)
  Sender: FDA-Public Use
  Company Number: PHHY2012NZ106857

PATIENT
  Age: 38 Year
  Sex: Female

DRUGS (1)
  1. CLOZARIL [Suspect]
     Dosage: UNK UKN, UNK
     Dates: start: 20080221

REACTIONS (2)
  - Granulocytes abnormal [Unknown]
  - Platelet count increased [Unknown]
